FAERS Safety Report 4715843-4 (Version None)
Quarter: 2005Q3

REPORT INFORMATION
  Report Type: 
  Country: None (occurrence: None)
  Receive Date: 20050715
  Receipt Date: 20050715
  Transmission Date: 20060218
  Serious: Yes (Other)
  Sender: FDA-Public Use
  Company Number: None

PATIENT
  Age: 37 Year
  Sex: Female
  Weight: 49.8957 kg

DRUGS (1)
  1. ZELNORM [Suspect]
     Indication: IRRITABLE BOWEL SYNDROME
     Dosage: 3. MG 1X DAY ORAL
     Route: 048
     Dates: start: 20040525, end: 20050601

REACTIONS (4)
  - BACK PAIN [None]
  - CHEST PAIN [None]
  - HEADACHE [None]
  - PALPITATIONS [None]
